FAERS Safety Report 20862860 (Version 2)
Quarter: 2022Q2

REPORT INFORMATION
  Report Type: Spontaneous
  Country: TR (occurrence: TR)
  Receive Date: 20220523
  Receipt Date: 20220608
  Transmission Date: 20220721
  Serious: Yes (Other)
  Sender: FDA-Public Use
  Company Number: TR-INSUD PHARMA-2205TR01940

PATIENT

DRUGS (1)
  1. ACYCLOVIR [Suspect]
     Active Substance: ACYCLOVIR
     Indication: Herpes simplex encephalitis
     Dosage: 10 MILLIGRAM/KILOGRAM, Q8H
     Route: 042

REACTIONS (5)
  - Hypersensitivity [Recovered/Resolved]
  - Angioedema [Recovered/Resolved]
  - Tongue oedema [Recovered/Resolved]
  - Lip oedema [Recovered/Resolved]
  - Rash maculo-papular [Recovered/Resolved]
